FAERS Safety Report 9784096 (Version 3)
Quarter: 2014Q1

REPORT INFORMATION
  Report Type: Spontaneous
  Country: US (occurrence: US)
  Receive Date: 20131226
  Receipt Date: 20140203
  Transmission Date: 20141002
  Serious: Yes (Other)
  Sender: FDA-Public Use
  Company Number: US-PFIZER INC-2013368823

PATIENT
  Age: 50 Year
  Sex: Male

DRUGS (3)
  1. DILANTIN-125 [Suspect]
     Dosage: 100 MG, 3X/DAY
     Route: 048
  2. DEXAMETHASONE [Concomitant]
     Dosage: UNK
  3. ALBUTEROL [Concomitant]
     Dosage: UNK

REACTIONS (4)
  - Convulsion [Unknown]
  - Neoplasm malignant [Unknown]
  - Metastasis [Unknown]
  - Impaired work ability [Unknown]
